FAERS Safety Report 13507189 (Version 1)
Quarter: 2017Q2

REPORT INFORMATION
  Report Type: Spontaneous
  Country: US (occurrence: US)
  Receive Date: 20170502
  Receipt Date: 20170502
  Transmission Date: 20170830
  Serious: Yes (Hospitalization)
  Sender: FDA-Public Use
  Company Number: None

PATIENT
  Age: 59 Year
  Sex: Male
  Weight: 86.7 kg

DRUGS (1)
  1. NIVOLUMAB [Suspect]
     Active Substance: NIVOLUMAB
     Dosage: ?          OTHER FREQUENCY:EVERY 2 WEEKS;?
     Route: 042
     Dates: start: 20170329

REACTIONS (2)
  - Seizure [None]
  - Lung infection [None]

NARRATIVE: CASE EVENT DATE: 20170501
